FAERS Safety Report 21481476 (Version 2)
Quarter: 2022Q4

REPORT INFORMATION
  Report Type: Spontaneous
  Country: US (occurrence: US)
  Receive Date: 20221019
  Receipt Date: 20221109
  Transmission Date: 20230113
  Serious: Yes (Other)
  Sender: FDA-Public Use
  Company Number: US-BRISTOL-MYERS SQUIBB COMPANY-2022-123876

PATIENT
  Age: 78 Year
  Sex: Female
  Weight: 60.9 kg

DRUGS (12)
  1. REVLIMID [Suspect]
     Active Substance: LENALIDOMIDE
     Indication: Product used for unknown indication
     Dosage: DAILY X 21 DAYS
     Route: 048
     Dates: start: 20220915
  2. REVLIMID [Suspect]
     Active Substance: LENALIDOMIDE
     Dosage: QD FOR 14 DAYS
     Route: 048
     Dates: start: 20220914
  3. ONDANSETRON [Concomitant]
     Active Substance: ONDANSETRON
  4. AMLODIPINE [Concomitant]
     Active Substance: AMLODIPINE BESYLATE
  5. CLONAZEPAM [Concomitant]
     Active Substance: CLONAZEPAM
  6. LANSOPRAZOLE [Concomitant]
     Active Substance: LANSOPRAZOLE
  7. TRAZODONE [Concomitant]
     Active Substance: TRAZODONE HYDROCHLORIDE
  8. MELOXICAM [Concomitant]
     Active Substance: MELOXICAM
  9. MORPHINE [Concomitant]
     Active Substance: MORPHINE
  10. ACYCLOVIR [Concomitant]
     Active Substance: ACYCLOVIR
  11. DEXAMETHASONE [Concomitant]
     Active Substance: DEXAMETHASONE
  12. Proclorperazine [Concomitant]

REACTIONS (3)
  - Neutropenia [Unknown]
  - Fatigue [Unknown]
  - Off label use [Unknown]

NARRATIVE: CASE EVENT DATE: 20221013
